FAERS Safety Report 18313809 (Version 4)
Quarter: 2021Q1

REPORT INFORMATION
  Report Type: Spontaneous
  Country: US (occurrence: US)
  Receive Date: 20200925
  Receipt Date: 20210121
  Transmission Date: 20210419
  Serious: Yes (Hospitalization)
  Sender: FDA-Public Use
  Company Number: US-CELGENEUS-USA-20200905144

PATIENT
  Age: 70 Year
  Sex: Female
  Weight: 85.35 kg

DRUGS (3)
  1. REVLIMID [Suspect]
     Active Substance: LENALIDOMIDE
     Dosage: 15 MILLIGRAM
     Route: 048
     Dates: start: 202010
  2. REVLIMID [Suspect]
     Active Substance: LENALIDOMIDE
     Indication: PLASMA CELL MYELOMA
     Dosage: 10 MILLIGRAM
     Route: 048
     Dates: start: 20200825
  3. VITAMIN D [Concomitant]
     Active Substance: VITAMIN D NOS
     Indication: PRODUCT USED FOR UNKNOWN INDICATION
     Route: 065

REACTIONS (8)
  - Rib fracture [Unknown]
  - Cardiac disorder [Unknown]
  - Dizziness [Unknown]
  - Heart rate increased [Unknown]
  - Blood potassium decreased [Unknown]
  - Upper limb fracture [Unknown]
  - Hypertension [Unknown]
  - Fall [Unknown]

NARRATIVE: CASE EVENT DATE: 20200908
